FAERS Safety Report 13291578 (Version 2)
Quarter: 2017Q2

REPORT INFORMATION
  Report Type: Report from Study
  Country: ES (occurrence: ES)
  Receive Date: 20170303
  Receipt Date: 20170406
  Transmission Date: 20170830
  Serious: Yes (Hospitalization)
  Sender: FDA-Public Use
  Company Number: ES-ASTELLAS-2017US007630

PATIENT
  Age: 79 Year
  Sex: Male

DRUGS (21)
  1. ENZALUTAMIDE [Suspect]
     Active Substance: ENZALUTAMIDE
     Indication: PROSTATE CANCER
     Route: 048
     Dates: start: 20160122, end: 20170218
  2. TRAMADOL. [Concomitant]
     Active Substance: TRAMADOL
     Indication: PAIN
     Dosage: UNK MG, ONCE DAILY
     Route: 042
     Dates: start: 20170218, end: 20170218
  3. ENZALUTAMIDE [Suspect]
     Active Substance: ENZALUTAMIDE
     Route: 048
     Dates: start: 20170220, end: 20170306
  4. PLETAL [Concomitant]
     Active Substance: CILOSTAZOL
     Indication: ISCHAEMIC CARDIOMYOPATHY
     Route: 048
     Dates: end: 20170218
  5. LEXATIN                            /00424801/ [Concomitant]
     Active Substance: BROMAZEPAM
     Indication: ANXIOLYTIC THERAPY
     Route: 048
  6. PARACETAMOL [Concomitant]
     Active Substance: ACETAMINOPHEN
     Indication: PYREXIA
     Route: 042
     Dates: start: 20170218, end: 20170307
  7. TRAVATAN [Concomitant]
     Active Substance: TRAVOPROST
     Indication: CATARACT
     Dosage: 40 MCG/ ML (2.5 ML DROPS IN SOLUTION 40 MCG), ONCE DAILY
     Route: 047
  8. PRIMPERAN [Concomitant]
     Active Substance: METOCLOPRAMIDE HYDROCHLORIDE
     Indication: PROPHYLAXIS
     Route: 042
     Dates: start: 20170218, end: 20170307
  9. MOVICOL [Concomitant]
     Active Substance: POLYETHYLENE GLYCOL 3350\POTASSIUM CHLORIDE\SODIUM BICARBONATE\SODIUM CHLORIDE
     Indication: CONSTIPATION
  10. OMEPRAZOL                          /00661201/ [Concomitant]
     Active Substance: OMEPRAZOLE
     Indication: PROPHYLAXIS
     Route: 048
  11. MANIDIPINO CINFA [Concomitant]
     Indication: HYPERTENSION
     Route: 048
     Dates: start: 20160318, end: 20170218
  12. ATORVASTATIN [Concomitant]
     Active Substance: ATORVASTATIN
     Indication: DYSLIPIDAEMIA
     Route: 048
  13. OPENVAS PLUS [Concomitant]
     Active Substance: HYDROCHLOROTHIAZIDE\OLMESARTAN MEDOXOMIL
     Indication: HYPERTENSION
     Dosage: 40/25 MG, ONCE DAILY
     Route: 048
     Dates: start: 20160318, end: 20170218
  14. CARDURAN NEO [Concomitant]
     Active Substance: DOXAZOSIN MESYLATE
     Indication: HYPERTENSION
     Route: 048
     Dates: start: 20160318, end: 20170218
  15. CAFINITRINA                        /00702101/ [Concomitant]
     Indication: ISCHAEMIC CARDIOMYOPATHY
     Dosage: 1 MG (DF), AS NEEDED
     Route: 060
     Dates: start: 20160415
  16. ADIRO [Concomitant]
     Active Substance: ASPIRIN
     Indication: ISCHAEMIC CARDIOMYOPATHY
     Route: 048
     Dates: end: 20170218
  17. MOVICOL [Concomitant]
     Active Substance: POLYETHYLENE GLYCOL 3350\POTASSIUM CHLORIDE\SODIUM BICARBONATE\SODIUM CHLORIDE
     Indication: ILEUS PARALYTIC
     Route: 048
     Dates: start: 20170218
  18. PARACETAMOL [Concomitant]
     Active Substance: ACETAMINOPHEN
     Indication: PAIN
  19. VISCOFRESH [Concomitant]
     Indication: DRY EYE
     Route: 047
     Dates: start: 20141201
  20. METAMIZOL                          /06276702/ [Concomitant]
     Active Substance: METAMIZOLE
     Indication: INGUINAL HERNIA REPAIR
     Route: 048
     Dates: start: 20150607
  21. ONDANSETRON [Concomitant]
     Active Substance: ONDANSETRON
     Indication: PROPHYLAXIS
     Dosage: 1 AMPULE, AS NEEDED
     Route: 042
     Dates: start: 20170218, end: 20170218

REACTIONS (1)
  - Cerebrovascular accident [Recovered/Resolved with Sequelae]

NARRATIVE: CASE EVENT DATE: 20170218
